FAERS Safety Report 7394667-6 (Version None)
Quarter: 2011Q1

REPORT INFORMATION
  Report Type: 
  Country: None (occurrence: None)
  Receive Date: 20110331
  Receipt Date: 20110331
  Transmission Date: 20110831
  Serious: Yes (Other)
  Sender: FDA-Public Use
  Company Number: None

PATIENT
  Age: 33 Year
  Sex: Female
  Weight: 68.0396 kg

DRUGS (1)
  1. AMPHETAMINE ER CAP 20MG TEVA/BARR [Suspect]
     Indication: ATTENTION DEFICIT/HYPERACTIVITY DISORDER
     Dosage: 20MG 2 PO
     Route: 048
     Dates: start: 20110322, end: 20110326

REACTIONS (4)
  - NO THERAPEUTIC RESPONSE [None]
  - ANXIETY [None]
  - HEADACHE [None]
  - PARANOIA [None]
